FAERS Safety Report 12270420 (Version 2)
Quarter: 2016Q2

REPORT INFORMATION
  Report Type: Spontaneous
  Country: US (occurrence: US)
  Receive Date: 20160415
  Receipt Date: 20160415
  Transmission Date: 20160815
  Serious: Yes (Other)
  Sender: FDA-Public Use
  Company Number: US-SHIRE-US-001067

PATIENT
  Age: 48 Year
  Sex: Female

DRUGS (4)
  1. TPN [Concomitant]
     Active Substance: AMINO ACIDS\DEXTROSE\ELECTROLYTES NOS\SOYBEAN OIL
     Indication: MEDICAL DIET
     Dosage: DF
     Route: 065
  2. GATTEX [Suspect]
     Active Substance: TEDUGLUTIDE\WATER
     Indication: SHORT-BOWEL SYNDROME
     Dosage: 0.05 MG/KG, 1X/DAY:QD
     Route: 058
     Dates: start: 2013
  3. GATTEX [Suspect]
     Active Substance: TEDUGLUTIDE\WATER
     Indication: INFLAMMATORY BOWEL DISEASE
  4. 6-MP [Concomitant]
     Active Substance: MERCAPTOPURINE
     Indication: INFLAMMATORY BOWEL DISEASE
     Dosage: UNK
     Route: 065

REACTIONS (4)
  - Intestinal obstruction [Unknown]
  - Gastrointestinal disorder [Unknown]
  - Off label use [Unknown]
  - Breast cancer [Unknown]

NARRATIVE: CASE EVENT DATE: 20140616
